FAERS Safety Report 5514744-1 (Version None)
Quarter: 2007Q4

REPORT INFORMATION
  Report Type: 
  Country: None (occurrence: None)
  Receive Date: 20071113
  Receipt Date: 20071112
  Transmission Date: 20080405
  Serious: Yes (Hospitalization)
  Sender: FDA-Public Use
  Company Number: FR-ELI_LILLY_AND_COMPANY-FR200711002473

PATIENT
  Sex: Male

DRUGS (5)
  1. PROZAC [Suspect]
     Indication: SCHIZOPHRENIA
     Dosage: UNK, UNK
     Route: 048
     Dates: start: 20060101
  2. DEPAKOTE [Concomitant]
     Indication: SCHIZOPHRENIA
     Dosage: UNK, UNK
     Route: 048
  3. LEPONEX [Concomitant]
     Indication: SCHIZOPHRENIA
     Route: 048
     Dates: start: 20070830, end: 20070921
  4. STILNOX [Concomitant]
     Indication: SCHIZOPHRENIA
     Dosage: UNK, UNK
     Route: 048
     Dates: start: 20060101
  5. PROSCAR [Concomitant]
     Dosage: UNK, UNK
     Route: 048

REACTIONS (6)
  - ALPHA GLOBULIN INCREASED [None]
  - BETA GLOBULIN INCREASED [None]
  - HYPOALBUMINAEMIA [None]
  - IMMUNOGLOBULINS INCREASED [None]
  - LEUKOCYTOCLASTIC VASCULITIS [None]
  - RASH MACULO-PAPULAR [None]
